FAERS Safety Report 9659736 (Version 2)
Quarter: 2013Q4

REPORT INFORMATION
  Report Type: Spontaneous
  Country: US (occurrence: None)
  Receive Date: 20131029
  Receipt Date: 20131107
  Transmission Date: 20140711
  Serious: Yes (Hospitalization)
  Sender: FDA-Public Use
  Company Number: USA/USA/13/0035295

PATIENT
  Age: 44 Year
  Sex: Male
  Weight: 65.32 kg

DRUGS (2)
  1. LIDOCAINE PATCH 5% (DR. REDDY^S LABORATORIES) (LIDOCAINE) [Suspect]
     Route: 062
     Dates: start: 20131018
  2. LIDODERM (LIDOCAINE) [Suspect]
     Route: 062
     Dates: start: 20131018

REACTIONS (3)
  - Convulsion [None]
  - Product adhesion issue [None]
  - Toxicity to various agents [None]
